FAERS Safety Report 4428000-6 (Version None)
Quarter: 2004Q3

REPORT INFORMATION
  Report Type: 
  Country: None (occurrence: None)
  Receive Date: 20040726
  Receipt Date: 20040309
  Transmission Date: 20050211
  Serious: No
  Sender: FDA-Public Use
  Company Number: USA030741033

PATIENT
  Age: 81 Year
  Sex: Female
  Weight: 55 kg

DRUGS (13)
  1. FORTEO [Suspect]
     Indication: OSTEOPOROSIS
     Dosage: 20 UG
     Dates: start: 20030409
  2. NEURONTIN [Concomitant]
  3. DETROL LA (TOLTERODINE L-TARTRATE) [Concomitant]
  4. FUROSEMIDE [Concomitant]
  5. FLUOXETINE [Concomitant]
  6. DIPHENOXYLATE HYDROCHLORIDE [Concomitant]
  7. AMBIEN [Concomitant]
  8. VITAMIN B-12 [Concomitant]
  9. CITRACAL (CALCIUM CITRATE) [Concomitant]
  10. VITAMIN E [Concomitant]
  11. ASPIRIN [Concomitant]
  12. COSAMIN DS [Concomitant]
  13. KLOR-CON [Concomitant]

REACTIONS (5)
  - INJECTION SITE DISCOLOURATION [None]
  - INJECTION SITE HAEMORRHAGE [None]
  - JOINT RANGE OF MOTION DECREASED [None]
  - JOINT SWELLING [None]
  - PAIN IN EXTREMITY [None]
